FAERS Safety Report 5444375-3 (Version None)
Quarter: 2007Q3

REPORT INFORMATION
  Report Type: 
  Country: None (occurrence: None)
  Receive Date: 20070906
  Receipt Date: 20070831
  Transmission Date: 20080115
  Serious: Yes (Hospitalization)
  Sender: FDA-Public Use
  Company Number: PHNU2007DE03012

PATIENT
  Age: 4 Year
  Sex: Female

DRUGS (2)
  1. CYCLOSPORINE [Suspect]
     Indication: IMMUNE SYSTEM DISORDER
     Route: 065
     Dates: start: 20070801
  2. VORICONAZOLE [Suspect]

REACTIONS (5)
  - ACCIDENTAL OVERDOSE [None]
  - DRUG INTERACTION [None]
  - DRUG TOXICITY [None]
  - HEPATIC FAILURE [None]
  - RENAL FAILURE [None]
